FAERS Safety Report 6990343-X (Version None)
Quarter: 2010Q3

REPORT INFORMATION
  Report Type: 
  Country: None (occurrence: None)
  Receive Date: 20100916
  Receipt Date: 20100601
  Transmission Date: 20110219
  Serious: Yes (Other)
  Sender: FDA-Public Use
  Company Number: US-PFIZER INC-2009263024

PATIENT
  Sex: Female
  Weight: 76 kg

DRUGS (8)
  1. LYRICA [Suspect]
     Indication: NEURALGIA
     Dosage: 300 MG, 2X/DAY
     Route: 048
     Dates: start: 20070926
  2. LYRICA [Suspect]
     Indication: NEUROPATHY PERIPHERAL
     Dosage: 225 MG, 2X/DAY
     Route: 048
     Dates: start: 20080101
  3. LISINOPRIL [Concomitant]
     Indication: HYPERTENSION
     Dosage: UNK
     Dates: start: 20070101
  4. XANAX [Concomitant]
     Indication: ANXIETY
     Dosage: UNK
     Route: 048
  5. LISINOPRIL AND HYDROCHLOROTHIAZIDE [Concomitant]
     Dosage: 20/12.5 MG DAILY
  6. LORATADINE [Concomitant]
     Dosage: 10 MG, 1X/DAY
  7. BUSPIRONE HCL [Concomitant]
     Dosage: 10 MG, 2X/DAY
  8. CELEBREX [Concomitant]
     Dosage: 200 MG, 1X/DAY

REACTIONS (3)
  - DYSPNOEA [None]
  - JOINT INJURY [None]
  - WITHDRAWAL SYNDROME [None]
